FAERS Safety Report 9616033 (Version 2)
Quarter: 2013Q4

REPORT INFORMATION
  Report Type: Spontaneous
  Country: US (occurrence: US)
  Receive Date: 20131011
  Receipt Date: 20131011
  Transmission Date: 20140711
  Serious: No
  Sender: FDA-Public Use
  Company Number: US-PURDUE-USA-2013-0099877

PATIENT
  Age: 66 Year
  Sex: Female

DRUGS (3)
  1. BUTRANS [Suspect]
     Indication: PAIN
     Dosage: 10 MCG/HR, WEEKLY
     Route: 062
     Dates: start: 201302, end: 20130310
  2. BUTRANS [Suspect]
     Dosage: 20 MCG/HR, WEEKLY
     Route: 062
     Dates: start: 20130309, end: 20130421
  3. BUTRANS [Suspect]
     Dosage: 10 MCG/HR, WEEKLY
     Route: 062
     Dates: start: 20130421

REACTIONS (4)
  - Drug ineffective [Not Recovered/Not Resolved]
  - Drug effect decreased [Unknown]
  - Fatigue [Unknown]
  - Product packaging issue [Unknown]
